APPROVED DRUG PRODUCT: CARVEDILOL
Active Ingredient: CARVEDILOL
Strength: 6.25MG
Dosage Form/Route: TABLET;ORAL
Application: A078786 | Product #002 | TE Code: AB
Applicant: MLV PHARMA LLC
Approved: Dec 22, 2009 | RLD: No | RS: No | Type: RX